FAERS Safety Report 11394143 (Version 1)
Quarter: 2015Q3

REPORT INFORMATION
  Report Type: Spontaneous
  Country: US (occurrence: None)
  Receive Date: 20150817
  Receipt Date: 20150817
  Transmission Date: 20151125
  Serious: No
  Sender: FDA-Public Use
  Company Number: None

PATIENT
  Sex: Female

DRUGS (5)
  1. DULOXETINE. [Concomitant]
     Active Substance: DULOXETINE
  2. IRON [Concomitant]
     Active Substance: IRON
  3. TAMIFLU [Concomitant]
     Active Substance: OSELTAMIVIR PHOSPHATE
  4. SPRYCEL [Suspect]
     Active Substance: DASATINIB
     Indication: CHRONIC MYELOID LEUKAEMIA
     Route: 048
     Dates: start: 20150407
  5. AMOXICILLIN. [Concomitant]
     Active Substance: AMOXICILLIN

REACTIONS (2)
  - Drug dose omission [None]
  - No adverse event [None]
